FAERS Safety Report 16104231 (Version 1)
Quarter: 2019Q1

REPORT INFORMATION
  Report Type: Spontaneous
  Country: US (occurrence: US)
  Receive Date: 20190322
  Receipt Date: 20190322
  Transmission Date: 20190418
  Serious: No
  Sender: FDA-Public Use
  Company Number: US-GLAXOSMITHKLINE-US2019GSK048879

PATIENT
  Age: 80 Year
  Sex: Female

DRUGS (1)
  1. TRANSDERM SCOP [Suspect]
     Active Substance: SCOPOLAMINE
     Indication: RETCHING
     Dosage: 3 UNK, UNK

REACTIONS (3)
  - Drug effect variable [Unknown]
  - Product use in unapproved indication [Unknown]
  - Off label use [Unknown]
